FAERS Safety Report 17637750 (Version 1)
Quarter: 2020Q2

REPORT INFORMATION
  Report Type: Spontaneous
  Country: HU (occurrence: HU)
  Receive Date: 20200407
  Receipt Date: 20200407
  Transmission Date: 20200713
  Serious: Yes (Other)
  Sender: FDA-Public Use
  Company Number: HU-PFIZER INC-2020124002

PATIENT
  Sex: Male

DRUGS (1)
  1. XANAX XR [Suspect]
     Active Substance: ALPRAZOLAM
     Indication: SOMATIC SYMPTOM DISORDER
     Dosage: UNK

REACTIONS (5)
  - Tachycardia [Unknown]
  - Drug dependence [Unknown]
  - Hyperventilation [Unknown]
  - Product dose omission [Unknown]
  - Muscle spasms [Unknown]
